FAERS Safety Report 5860746-5 (Version None)
Quarter: 2008Q3

REPORT INFORMATION
  Report Type: 
  Country: None (occurrence: None)
  Receive Date: 20080827
  Receipt Date: 20071026
  Transmission Date: 20090109
  Serious: No
  Sender: FDA-Public Use
  Company Number: US-ABBOTT-07P-163-0422379-00

PATIENT
  Sex: Female
  Weight: 61.29 kg

DRUGS (2)
  1. COATED PDS [Suspect]
     Indication: HIGH DENSITY LIPOPROTEIN DECREASED
     Dosage: AT NIGHT
     Route: 048
     Dates: start: 20071018, end: 20071019
  2. SIMVASTATIN [Concomitant]
     Indication: BLOOD CHOLESTEROL
     Route: 048

REACTIONS (6)
  - ERYTHEMA [None]
  - FEELING COLD [None]
  - FEELING HOT [None]
  - NAUSEA [None]
  - PARAESTHESIA [None]
  - PRURITUS [None]
